FAERS Safety Report 23450095 (Version 1)
Quarter: 2024Q1

REPORT INFORMATION
  Report Type: Spontaneous
  Country: US (occurrence: US)
  Receive Date: 20240129
  Receipt Date: 20240129
  Transmission Date: 20240410
  Serious: Yes (Hospitalization, Other)
  Sender: FDA-Public Use
  Company Number: US-GSKCCFUS-Case-01913887_AE-106616

PATIENT

DRUGS (1)
  1. BENLYSTA [Suspect]
     Active Substance: BELIMUMAB
     Indication: Product used for unknown indication
     Dosage: UNK
     Dates: start: 2012

REACTIONS (6)
  - Cardiac failure [Not Recovered/Not Resolved]
  - Appendicitis perforated [Recovered/Resolved]
  - Kidney infection [Recovered/Resolved]
  - Urinary tract infection [Unknown]
  - COVID-19 [Recovered/Resolved]
  - Product dose omission issue [Unknown]
